FAERS Safety Report 9672221 (Version 1)
Quarter: 2013Q4

REPORT INFORMATION
  Report Type: Spontaneous
  Country: US (occurrence: US)
  Receive Date: 20131106
  Receipt Date: 20131106
  Transmission Date: 20140711
  Serious: No
  Sender: FDA-Public Use
  Company Number: US-009507513-1311USA002232

PATIENT
  Sex: Female

DRUGS (6)
  1. PEGINTRON [Suspect]
     Indication: HEPATITIS C
     Dosage: UNK
     Dates: start: 20060101, end: 20060601
  2. PEGINTRON [Suspect]
     Dosage: UNK
     Dates: start: 20130527, end: 20130604
  3. PEGINTRON [Suspect]
     Dosage: UNK
     Dates: start: 20130901
  4. REBETOL [Suspect]
     Indication: HEPATITIS C
     Dosage: UNK
     Route: 048
     Dates: start: 20060101, end: 20060601
  5. REBETOL [Suspect]
     Dosage: UNK
     Route: 048
     Dates: start: 20130527, end: 20130604
  6. REBETOL [Suspect]
     Dosage: UNK
     Route: 048
     Dates: start: 20130901

REACTIONS (5)
  - Viral load increased [Unknown]
  - Drug ineffective [Unknown]
  - Therapeutic response decreased [Unknown]
  - Pancreatic injury [Unknown]
  - Type 2 diabetes mellitus [Unknown]
